FAERS Safety Report 21652857 (Version 1)
Quarter: 2022Q4

REPORT INFORMATION
  Report Type: Spontaneous
  Country: BE (occurrence: BE)
  Receive Date: 20221128
  Receipt Date: 20221128
  Transmission Date: 20230113
  Serious: Yes (Other)
  Sender: FDA-Public Use
  Company Number: None

PATIENT
  Age: 27 Year
  Sex: Female

DRUGS (3)
  1. XANAX [Suspect]
     Active Substance: ALPRAZOLAM
     Indication: Product used for unknown indication
     Dosage: 0.5 MILLIGRAM, QD, IN THE MORNING
     Route: 065
  2. ALPRAZOLAM [Suspect]
     Active Substance: ALPRAZOLAM
     Indication: Anxiety
     Dosage: 1 TIME A DAY AT BEDTIME
     Route: 048
     Dates: start: 20220829
  3. XYLOMETAZOLINE HYDROCHLORIDE [Suspect]
     Active Substance: XYLOMETAZOLINE HYDROCHLORIDE
     Indication: Product used for unknown indication
     Dosage: UNK
     Route: 065

REACTIONS (13)
  - Respiratory depression [Not Recovered/Not Resolved]
  - Drug dependence [Not Recovered/Not Resolved]
  - Vertigo [Not Recovered/Not Resolved]
  - Negative thoughts [Not Recovered/Not Resolved]
  - Palpitations [Not Recovered/Not Resolved]
  - Decreased appetite [Not Recovered/Not Resolved]
  - Somnolence [Not Recovered/Not Resolved]
  - Insomnia [Not Recovered/Not Resolved]
  - Weight decreased [Not Recovered/Not Resolved]
  - Fatigue [Not Recovered/Not Resolved]
  - Muscular weakness [Not Recovered/Not Resolved]
  - Balance disorder [Not Recovered/Not Resolved]
  - Hypersomnia [Not Recovered/Not Resolved]

NARRATIVE: CASE EVENT DATE: 20220912
